FAERS Safety Report 5191722-6 (Version None)
Quarter: 2006Q4

REPORT INFORMATION
  Report Type: 
  Country: None (occurrence: None)
  Receive Date: 20061219
  Receipt Date: 20061206
  Transmission Date: 20070319
  Serious: Yes (Life-Threatening, Other)
  Sender: FDA-Public Use
  Company Number: 2006112306

PATIENT
  Age: 63 Year
  Sex: Male
  Weight: 55 kg

DRUGS (9)
  1. SILDENAFIL CITRATE [Suspect]
     Indication: PULMONARY HYPERTENSION
     Dosage: 50 MG (50 MG, 1 IN 1 D); ORAL
     Route: 048
     Dates: start: 20060622
  2. AMLODIPINE [Suspect]
     Dosage: 2.5 MG
     Dates: end: 20060630
  3. TRACLEER [Concomitant]
  4. ACARDI (PIMOBENDAN) [Concomitant]
  5. WARFARIN SODIUM [Concomitant]
  6. FUROSEMIDE [Concomitant]
  7. SPIRONOLACTONE [Concomitant]
  8. METILDOGOXIN [Concomitant]
  9. BERAPROST [Concomitant]

REACTIONS (6)
  - DRUG INEFFECTIVE [None]
  - HYPOTENSION [None]
  - LEFT VENTRICULAR FAILURE [None]
  - PULMONARY CONGESTION [None]
  - PYREXIA [None]
  - RIGHT VENTRICULAR FAILURE [None]
